FAERS Safety Report 21258816 (Version 5)
Quarter: 2022Q4

REPORT INFORMATION
  Report Type: Spontaneous
  Country: GB (occurrence: GB)
  Receive Date: 20220826
  Receipt Date: 20221130
  Transmission Date: 20230113
  Serious: Yes (Death, Other)
  Sender: FDA-Public Use
  Company Number: GB-REC-ISN-NCA-2019-0059

PATIENT
  Age: 37 Year
  Sex: Male

DRUGS (23)
  1. DEXAMETHASONE [Suspect]
     Active Substance: DEXAMETHASONE
     Indication: Tuberculosis of central nervous system
     Dosage: 16 MILLIGRAM, BID (16 MG, BID) (12 HOURS)
     Route: 042
  2. DEXAMETHASONE [Suspect]
     Active Substance: DEXAMETHASONE
     Indication: Immune reconstitution inflammatory syndrome
     Dosage: 32 MILLIGRAM, QD (16 MG, BID)
     Route: 042
  3. DEXAMETHASONE [Suspect]
     Active Substance: DEXAMETHASONE
     Dosage: 8 MILLIGRAM, TID
     Route: 042
  4. LEVOFLOXACIN [Suspect]
     Active Substance: LEVOFLOXACIN
     Indication: Tuberculosis
     Dosage: UNK
     Route: 065
  5. LEVOFLOXACIN [Suspect]
     Active Substance: LEVOFLOXACIN
     Indication: Tuberculosis of central nervous system
     Dosage: UNK
     Route: 065
  6. RIFAMPIN [Suspect]
     Active Substance: RIFAMPIN
     Indication: Disseminated tuberculosis
     Dosage: UNK
     Route: 065
  7. RIFAMPIN [Suspect]
     Active Substance: RIFAMPIN
     Indication: Tuberculosis of central nervous system
     Dosage: UNK
     Route: 065
  8. RIFAMPIN [Suspect]
     Active Substance: RIFAMPIN
     Indication: Tuberculosis
  9. AMIKACIN SULFATE [Suspect]
     Active Substance: AMIKACIN SULFATE
     Indication: Tuberculosis
     Dosage: UNK
     Route: 065
  10. AMIKACIN SULFATE [Suspect]
     Active Substance: AMIKACIN SULFATE
     Indication: Tuberculosis of central nervous system
     Dosage: UNK
     Route: 065
  11. ETHAMBUTOL [Suspect]
     Active Substance: ETHAMBUTOL HYDROCHLORIDE
     Indication: Disseminated tuberculosis
     Dosage: UNK
     Route: 065
  12. ETHAMBUTOL [Suspect]
     Active Substance: ETHAMBUTOL HYDROCHLORIDE
     Indication: Tuberculosis of central nervous system
     Dosage: UNK
     Route: 065
  13. ISONIAZID [Suspect]
     Active Substance: ISONIAZID
     Indication: Disseminated tuberculosis
     Dosage: UNK
     Route: 065
  14. ISONIAZID [Suspect]
     Active Substance: ISONIAZID
     Indication: Tuberculosis
     Dosage: UNK
     Route: 065
  15. MOXIFLOXACIN [Suspect]
     Active Substance: MOXIFLOXACIN
     Indication: Tuberculosis of central nervous system
     Dosage: UNK
     Route: 042
  16. MOXIFLOXACIN [Suspect]
     Active Substance: MOXIFLOXACIN
     Indication: Disseminated tuberculosis
  17. PYRAZINAMIDE [Suspect]
     Active Substance: PYRAZINAMIDE
     Indication: Disseminated tuberculosis
     Dosage: UNK
     Route: 042
  18. PYRAZINAMIDE [Suspect]
     Active Substance: PYRAZINAMIDE
     Indication: Tuberculosis of central nervous system
     Dosage: UNK
     Route: 042
  19. PYRAZINAMIDE [Suspect]
     Active Substance: PYRAZINAMIDE
     Indication: Tuberculosis
  20. ISONIAZID\RIFAMPIN [Suspect]
     Active Substance: ISONIAZID\RIFAMPIN
     Indication: Disseminated tuberculosis
     Dosage: UNK
     Route: 042
  21. ISONIAZID\RIFAMPIN [Suspect]
     Active Substance: ISONIAZID\RIFAMPIN
     Indication: Tuberculosis of central nervous system
  22. THALIDOMIDE [Suspect]
     Active Substance: THALIDOMIDE
     Indication: Tuberculosis of central nervous system
     Dosage: 100 MILLIGRAM (50 MG, BID)
     Route: 065
  23. THALIDOMIDE [Suspect]
     Active Substance: THALIDOMIDE
     Dosage: 400 MILLIGRAM (200 MG, BID)
     Route: 065

REACTIONS (12)
  - Tuberculosis of central nervous system [Fatal]
  - Coma scale abnormal [Fatal]
  - Drug resistance [Fatal]
  - Immune reconstitution inflammatory syndrome [Fatal]
  - Cardiac arrest [Fatal]
  - Brain oedema [Fatal]
  - Condition aggravated [Fatal]
  - Vasculitis [Fatal]
  - Drug ineffective [Fatal]
  - Somnolence [Fatal]
  - Hydrocephalus [Fatal]
  - Thalamic infarction [Fatal]
